FAERS Safety Report 17840986 (Version 1)
Quarter: 2020Q2

REPORT INFORMATION
  Report Type: Spontaneous
  Country: CA (occurrence: CA)
  Receive Date: 20200529
  Receipt Date: 20200529
  Transmission Date: 20200714
  Serious: Yes (Hospitalization)
  Sender: FDA-Public Use
  Company Number: CA-ROCHE-2605191

PATIENT
  Age: 55 Year
  Sex: Female

DRUGS (11)
  1. ARAVA [Suspect]
     Active Substance: LEFLUNOMIDE
     Indication: RHEUMATOID ARTHRITIS
     Route: 065
  2. HYDROXYCHLOROQUINE [Suspect]
     Active Substance: HYDROXYCHLOROQUINE
     Indication: PAIN
     Route: 065
  3. FUROSEMIDE. [Concomitant]
     Active Substance: FUROSEMIDE
     Route: 065
  4. HYDROMORPH CONTIN [Concomitant]
     Active Substance: HYDROMORPHONE
     Route: 065
  5. DILAUDID [Concomitant]
     Active Substance: HYDROMORPHONE HYDROCHLORIDE
     Route: 065
  6. LYRICA [Concomitant]
     Active Substance: PREGABALIN
     Route: 048
  7. ENBREL [Suspect]
     Active Substance: ETANERCEPT
     Indication: RHEUMATOID ARTHRITIS
     Route: 058
  8. METHOTREXATE. [Suspect]
     Active Substance: METHOTREXATE
     Indication: RHEUMATOID ARTHRITIS
     Route: 065
  9. ACTEMRA [Suspect]
     Active Substance: TOCILIZUMAB
     Indication: ARTHRALGIA
     Route: 042
  10. CELEBREX [Suspect]
     Active Substance: CELECOXIB
     Indication: ARTHRALGIA
     Route: 065
  11. PREDNISONE. [Suspect]
     Active Substance: PREDNISONE
     Indication: ARTHRALGIA
     Route: 065

REACTIONS (28)
  - Deformity [Recovered/Resolved]
  - Dermatitis [Recovered/Resolved]
  - Encephalitis [Recovered/Resolved]
  - Drug ineffective [Recovered/Resolved]
  - Immunodeficiency [Recovered/Resolved]
  - Psychiatric symptom [Recovered/Resolved]
  - Scar [Recovered/Resolved]
  - Seizure [Recovered/Resolved]
  - Spinal deformity [Recovered/Resolved]
  - Immune system disorder [Recovered/Resolved]
  - Rheumatoid arthritis [Recovered/Resolved]
  - Sepsis [Recovered/Resolved]
  - Cardiovascular disorder [Recovered/Resolved]
  - Condition aggravated [Recovered/Resolved]
  - Pain [Recovered/Resolved]
  - Peripheral swelling [Recovered/Resolved]
  - Amnesia [Recovered/Resolved]
  - Cystitis [Recovered/Resolved]
  - Encephalitis brain stem [Recovered/Resolved]
  - Loss of personal independence in daily activities [Recovered/Resolved]
  - Depressed mood [Recovered/Resolved]
  - Joint destruction [Recovered/Resolved]
  - Vomiting [Recovered/Resolved]
  - Fall [Recovered/Resolved]
  - Immobile [Recovered/Resolved]
  - Fibromyalgia [Recovered/Resolved]
  - Memory impairment [Recovered/Resolved]
  - Rib fracture [Recovered/Resolved]
